FAERS Safety Report 21128325 (Version 2)
Quarter: 2022Q3

REPORT INFORMATION
  Report Type: Spontaneous
  Country: NO (occurrence: None)
  Receive Date: 20220725
  Receipt Date: 20220729
  Transmission Date: 20221026
  Serious: Yes (Other)
  Sender: FDA-Public Use
  Company Number: 2022A260197

PATIENT
  Sex: Female

DRUGS (11)
  1. QUETIAPINE FUMARATE [Suspect]
     Active Substance: QUETIAPINE FUMARATE
     Indication: Affective disorder
     Dosage: LOW DOSE
     Route: 048
     Dates: start: 2016
  2. QUETIAPINE FUMARATE [Suspect]
     Active Substance: QUETIAPINE FUMARATE
     Indication: Nervous system disorder
     Dosage: LOW DOSE
     Route: 048
     Dates: start: 2016
  3. QUETIAPINE FUMARATE [Suspect]
     Active Substance: QUETIAPINE FUMARATE
     Indication: Affective disorder
     Dosage: 400 MG X 1 + 100 MG WHEN NEEDED
     Route: 048
  4. QUETIAPINE FUMARATE [Suspect]
     Active Substance: QUETIAPINE FUMARATE
     Indication: Nervous system disorder
     Dosage: 400 MG X 1 + 100 MG WHEN NEEDED
     Route: 048
  5. LEVOTHYROXINE SODIUM [Concomitant]
     Active Substance: LEVOTHYROXINE SODIUM
  6. LITHIUM [Concomitant]
     Active Substance: LITHIUM
  7. TRIMEPRAZINE [Concomitant]
     Active Substance: TRIMEPRAZINE
  8. VITAMIN D [Concomitant]
     Active Substance: VITAMIN D NOS
  9. IRON [Concomitant]
     Active Substance: IRON
  10. OMEGA 3 [Concomitant]
     Active Substance: CAPSAICIN
  11. MAGNESIUM [Concomitant]
     Active Substance: MAGNESIUM

REACTIONS (9)
  - Apnoea [Unknown]
  - Hunger [Unknown]
  - Snoring [Unknown]
  - Nausea [Unknown]
  - Restless legs syndrome [Unknown]
  - Nightmare [Unknown]
  - Dyspepsia [Unknown]
  - Weight increased [Unknown]
  - Blood pressure decreased [Unknown]

NARRATIVE: CASE EVENT DATE: 20220630
